FAERS Safety Report 14545293 (Version 1)
Quarter: 2018Q1

REPORT INFORMATION
  Report Type: Spontaneous
  Country: US (occurrence: US)
  Receive Date: 20180218
  Receipt Date: 20180218
  Transmission Date: 20180509
  Serious: No
  Sender: FDA-Public Use
  Company Number: US-BIOGEN-2018BI00522596

PATIENT
  Age: 5 Month
  Sex: Female

DRUGS (1)
  1. SPINRAZA [Suspect]
     Active Substance: NUSINERSEN
     Indication: SPINAL MUSCULAR ATROPHY
     Route: 065
     Dates: start: 20170803

REACTIONS (8)
  - Malaise [Recovered/Resolved]
  - Ear infection [Recovered/Resolved]
  - General symptom [Recovered/Resolved]
  - Cough [Recovered/Resolved]
  - Respiratory disorder [Recovered/Resolved]
  - Pyrexia [Recovered/Resolved]
  - Pneumonia [Recovered/Resolved]
  - Pneumonia streptococcal [Recovered/Resolved]

NARRATIVE: CASE EVENT DATE: 201708
